FAERS Safety Report 5754353-2 (Version None)
Quarter: 2008Q2

REPORT INFORMATION
  Report Type: 
  Country: None (occurrence: None)
  Receive Date: 20080530
  Receipt Date: 20080520
  Transmission Date: 20081010
  Serious: Yes (Other)
  Sender: FDA-Public Use
  Company Number: GB-PFIZER INC-2008020219

PATIENT
  Age: 43 Year
  Sex: Male
  Weight: 96 kg

DRUGS (1)
  1. CHANTIX [Suspect]
     Indication: SMOKING CESSATION THERAPY
     Route: 048
     Dates: start: 20070925, end: 20071004

REACTIONS (2)
  - PARANOIA [None]
  - SENSORY LOSS [None]
